FAERS Safety Report 6291186-5 (Version None)
Quarter: 2009Q3

REPORT INFORMATION
  Report Type: 
  Country: None (occurrence: None)
  Receive Date: 20090730
  Receipt Date: 20090720
  Transmission Date: 20100115
  Serious: Yes (Hospitalization)
  Sender: FDA-Public Use
  Company Number: D0062394A

PATIENT
  Age: 51 Year
  Sex: Female

DRUGS (5)
  1. ALBUTEROL [Suspect]
     Dosage: .1MG UNKNOWN
     Route: 055
     Dates: start: 20030101
  2. THEOPHYLLINE-SR [Suspect]
     Dosage: 375MG TWICE PER DAY
     Route: 048
     Dates: start: 20030101, end: 20090625
  3. SPIRIVA [Suspect]
     Dosage: 18MCG PER DAY
     Route: 055
     Dates: start: 20030101
  4. SYMBICORT [Suspect]
     Dosage: 329MCG TWICE PER DAY
     Route: 055
     Dates: start: 20030101
  5. RAMIPRIL [Concomitant]
     Dosage: 2.5MG TWICE PER DAY
     Route: 048
     Dates: start: 20000101

REACTIONS (9)
  - DIZZINESS [None]
  - DRUG INTERACTION [None]
  - HYPOTENSION [None]
  - MALAISE [None]
  - NAUSEA [None]
  - OVERDOSE [None]
  - STRESS CARDIOMYOPATHY [None]
  - TACHYCARDIA [None]
  - VOMITING [None]
